FAERS Safety Report 6839468-X (Version None)
Quarter: 2010Q3

REPORT INFORMATION
  Report Type: 
  Country: None (occurrence: None)
  Receive Date: 20100714
  Receipt Date: 20090715
  Transmission Date: 20110219
  Serious: No
  Sender: FDA-Public Use
  Company Number: A0797135A

PATIENT
  Age: 87 Year
  Sex: Female

DRUGS (10)
  1. FLOVENT [Suspect]
     Indication: ASTHMA
     Dosage: 2PUFF TWICE PER DAY
     Route: 055
     Dates: start: 20090701
  2. VENTOLIN [Suspect]
     Indication: ASTHMA
     Dosage: 2PUFF THREE TIMES PER DAY
     Route: 055
     Dates: start: 20090701
  3. SINGULAIR [Concomitant]
  4. BLOOD PRESSURE MEDICATION [Concomitant]
  5. PAIN MEDICATION [Concomitant]
  6. DIABETES MEDICATION [Concomitant]
  7. UNKNOWN MEDICATION [Concomitant]
     Indication: ANXIETY
  8. UNKNOWN MEDICATION [Concomitant]
  9. UNKNOWN MEDICATION [Concomitant]
  10. UNKNOWN MEDICATION [Concomitant]
     Indication: TREMOR

REACTIONS (2)
  - DRUG INEFFECTIVE [None]
  - DYSPNOEA [None]
